FAERS Safety Report 8911752 (Version 1)
Quarter: 2012Q4

REPORT INFORMATION
  Report Type: 
  Country: US (occurrence: US)
  Receive Date: 20121116
  Receipt Date: 20121116
  Transmission Date: 20130627
  Serious: No
  Sender: FDA-Public Use
  Company Number: US-MYLANLABS-2012S1013691

PATIENT
  Age: 56 Year
  Sex: Male

DRUGS (1)
  1. AMLODIPINE [Suspect]
     Route: 048
     Dates: start: 201108

REACTIONS (2)
  - Oropharyngeal pain [Not Recovered/Not Resolved]
  - Foreign body [Recovered/Resolved]
